FAERS Safety Report 8000297-5 (Version None)
Quarter: 2011Q4

REPORT INFORMATION
  Report Type: 
  Country: None (occurrence: None)
  Receive Date: 20111220
  Receipt Date: 20111220
  Transmission Date: 20120403
  Serious: No
  Sender: FDA-Public Use
  Company Number: None

PATIENT
  Sex: Female
  Weight: 99.3377 kg

DRUGS (3)
  1. OCELLA 3-0.03MG BARR LABORATORIES [Suspect]
     Indication: PREMENSTRUAL SYNDROME
     Dosage: ONE TABLET DAILY BY MOUTH
     Route: 048
     Dates: start: 20091101, end: 20100201
  2. OCELLA 3-0.03MG BARR LABORATORIES [Suspect]
     Indication: MENSTRUATION IRREGULAR
     Dosage: ONE TABLET DAILY BY MOUTH
     Route: 048
     Dates: start: 20091101, end: 20100201
  3. OCELLA 3-0.03MG BARR LABORATORIES [Suspect]
     Indication: CONTRACEPTION
     Dosage: ONE TABLET DAILY BY MOUTH
     Route: 048
     Dates: start: 20091101, end: 20100201

REACTIONS (1)
  - MOOD ALTERED [None]
